FAERS Safety Report 23731975 (Version 2)
Quarter: 2024Q2

REPORT INFORMATION
  Report Type: Other
  Country: US (occurrence: None)
  Receive Date: 20240411
  Receipt Date: 20240418
  Transmission Date: 20240716
  Serious: Yes (Other)
  Sender: FDA-Public Use
  Company Number: US-ROCHE-3538474

PATIENT
  Age: 22 Year
  Sex: Female
  Weight: 50.848 kg

DRUGS (6)
  1. ACTEMRA [Suspect]
     Active Substance: TOCILIZUMAB
     Indication: Rheumatoid arthritis
     Route: 058
  2. ACTEMRA [Suspect]
     Active Substance: TOCILIZUMAB
     Indication: Rheumatoid arthritis
     Route: 042
  3. ACTEMRA [Suspect]
     Active Substance: TOCILIZUMAB
     Indication: Juvenile idiopathic arthritis
     Route: 042
     Dates: start: 2020
  4. ACTEMRA [Suspect]
     Active Substance: TOCILIZUMAB
     Dosage: STRENGTH: 400/200MG
     Route: 042
  5. IRON [Concomitant]
     Active Substance: IRON
     Dates: start: 202402
  6. COPPER [Concomitant]
     Active Substance: COPPER

REACTIONS (18)
  - Paralysis [Recovered/Resolved]
  - Chronic inflammatory demyelinating polyradiculoneuropathy [Unknown]
  - Autoimmune disorder [Unknown]
  - Rheumatoid arthritis [Unknown]
  - Sjogren^s syndrome [Not Recovered/Not Resolved]
  - Gastrointestinal disorder [Unknown]
  - Weight decreased [Unknown]
  - Malaise [Unknown]
  - Thyroid disorder [Not Recovered/Not Resolved]
  - Fatigue [Recovering/Resolving]
  - Iron deficiency anaemia [Not Recovered/Not Resolved]
  - Gastric haemorrhage [Recovered/Resolved]
  - Pain [Unknown]
  - Musculoskeletal stiffness [Unknown]
  - Off label use [Unknown]
  - Ear infection [Recovered/Resolved]
  - Eye swelling [Recovered/Resolved]
  - Urticaria [Recovered/Resolved]

NARRATIVE: CASE EVENT DATE: 20200101
